FAERS Safety Report 7465446 (Version 4)
Quarter: 2014Q1

REPORT INFORMATION
  Report Type: Spontaneous
  Country: US (occurrence: US)
  Receive Date: 20100712
  Receipt Date: 20140121
  Transmission Date: 20141002
  Serious: Yes (Hospitalization, Other)
  Sender: FDA-Public Use
  Company Number: US-BAYER-201027245NA

PATIENT
  Age: 20 Year
  Sex: Female
  Weight: 105.67 kg

DRUGS (7)
  1. YAZ [Suspect]
     Indication: CONTRACEPTION
     Dosage: 1 DF, QD
     Route: 048
     Dates: start: 200701, end: 200712
  2. BONTRIL [Concomitant]
     Dosage: 105 MG, UNK
  3. EFFEXOR [Concomitant]
  4. ZYRTEC [Concomitant]
     Indication: MULTIPLE ALLERGIES
  5. PHENTERMINE [Concomitant]
     Indication: WEIGHT DECREASED
     Dosage: UNK
     Dates: start: 2006, end: 2007
  6. CELEBREX [Concomitant]
     Dosage: 200 MG, QD
     Route: 048
  7. PRENATAL VITAMINS [Concomitant]
     Dosage: UNK, ONE DAILY
     Route: 048

REACTIONS (4)
  - Cholelithiasis [Unknown]
  - Cholecystitis chronic [None]
  - Abdominal pain upper [Unknown]
  - Back pain [Unknown]
